FAERS Safety Report 14470142 (Version 5)
Quarter: 2018Q1

REPORT INFORMATION
  Report Type: Spontaneous
  Country: US (occurrence: US)
  Receive Date: 20180131
  Receipt Date: 20180316
  Transmission Date: 20180509
  Serious: Yes (Hospitalization, Other)
  Sender: FDA-Public Use
  Company Number: US-ALEXION-A201800551

PATIENT
  Sex: Male

DRUGS (2)
  1. SOLIRIS [Suspect]
     Active Substance: ECULIZUMAB
     Indication: THROMBOTIC MICROANGIOPATHY
     Dosage: UNK
     Route: 065
  2. SOLIRIS [Suspect]
     Active Substance: ECULIZUMAB
     Indication: OFF LABEL USE

REACTIONS (15)
  - Bronchopulmonary aspergillosis [Not Recovered/Not Resolved]
  - Adenovirus infection [Not Recovered/Not Resolved]
  - Post procedural haemorrhage [Unknown]
  - Malaise [Unknown]
  - Fatigue [Unknown]
  - Abdominal discomfort [Unknown]
  - Graft versus host disease [Unknown]
  - Haemoglobin decreased [Unknown]
  - BK virus infection [Not Recovered/Not Resolved]
  - Blood bilirubin increased [Unknown]
  - Eating disorder [Unknown]
  - Platelet count decreased [Unknown]
  - Aspergillus infection [Unknown]
  - Off label use [Unknown]
  - Nausea [Unknown]
